FAERS Safety Report 17020700 (Version 2)
Quarter: 2020Q2

REPORT INFORMATION
  Report Type: Spontaneous
  Country: US (occurrence: US)
  Receive Date: 20191112
  Receipt Date: 20200614
  Transmission Date: 20200713
  Serious: No
  Sender: FDA-Public Use
  Company Number: US-TEVA-2019-US-1136758

PATIENT
  Sex: Female

DRUGS (1)
  1. AJOVY [Suspect]
     Active Substance: FREMANEZUMAB-VFRM
     Route: 065

REACTIONS (5)
  - Syringe issue [Unknown]
  - Injury associated with device [Unknown]
  - Application site haemorrhage [Unknown]
  - Accidental exposure to product [Unknown]
  - Needle issue [Unknown]
